FAERS Safety Report 4749452-8 (Version None)
Quarter: 2005Q3

REPORT INFORMATION
  Report Type: 
  Country: None (occurrence: None)
  Receive Date: 20050822
  Receipt Date: 20050809
  Transmission Date: 20060218
  Serious: Yes (Life-Threatening, Hospitalization, Other)
  Sender: FDA-Public Use
  Company Number: US-JNJFOC-20050502887

PATIENT
  Sex: Male
  Weight: 88 kg

DRUGS (1)
  1. REMICADE [Suspect]
     Indication: RHEUMATOID ARTHRITIS
     Route: 042

REACTIONS (12)
  - B-CELL LYMPHOMA [None]
  - CHRONIC OBSTRUCTIVE PULMONARY DISEASE [None]
  - EAR INFECTION [None]
  - HERPES ZOSTER [None]
  - INFLUENZA [None]
  - PLATELET COUNT DECREASED [None]
  - PLATELET DISORDER [None]
  - PNEUMONIA [None]
  - POSTOPERATIVE INFECTION [None]
  - SINUSITIS [None]
  - SPLEEN DISORDER [None]
  - URINARY TRACT INFECTION [None]
